FAERS Safety Report 6123503-0 (Version None)
Quarter: 2009Q1

REPORT INFORMATION
  Report Type: 
  Country: None (occurrence: None)
  Receive Date: 20090318
  Receipt Date: 20090309
  Transmission Date: 20090719
  Serious: Yes (Death)
  Sender: FDA-Public Use
  Company Number: AR-JNJCH-2009003773

PATIENT
  Age: 3 Year
  Sex: Male

DRUGS (2)
  1. ASPIRIN [Suspect]
     Indication: PYREXIA
     Dosage: TEXT:UNSPECIFIED
     Route: 048
  2. ACETAMINOPHEN [Suspect]
     Indication: PYREXIA
     Dosage: TEXT:UNSPECIFIED
     Route: 048

REACTIONS (3)
  - BRAIN OEDEMA [None]
  - NERVOUS SYSTEM DISORDER [None]
  - REYE'S SYNDROME [None]
